FAERS Safety Report 16232074 (Version 2)
Quarter: 2019Q2

REPORT INFORMATION
  Report Type: Report from Study
  Country: US (occurrence: US)
  Receive Date: 20190424
  Receipt Date: 20190517
  Transmission Date: 20190711
  Serious: No
  Sender: FDA-Public Use
  Company Number: PHEH2019US016780

PATIENT
  Age: 63 Year
  Sex: Female

DRUGS (1)
  1. COSENTYX [Suspect]
     Active Substance: SECUKINUMAB
     Indication: PSORIATIC ARTHROPATHY
     Dosage: 300 MG, QMO
     Route: 058
     Dates: start: 20181121

REACTIONS (8)
  - Decreased immune responsiveness [Unknown]
  - Oral mucosal erythema [Recovered/Resolved]
  - Oral pruritus [Recovered/Resolved]
  - Oral disorder [Unknown]
  - Oral candidiasis [Recovered/Resolved]
  - Oral discomfort [Unknown]
  - Tongue disorder [Unknown]
  - Oropharyngeal pain [Unknown]

NARRATIVE: CASE EVENT DATE: 20190415
